FAERS Safety Report 19082819 (Version 2)
Quarter: 2021Q3

REPORT INFORMATION
  Report Type: Other
  Country: SA (occurrence: SA)
  Receive Date: 20210401
  Receipt Date: 20210907
  Transmission Date: 20211014
  Serious: Yes (Hospitalization, Other)
  Sender: FDA-Public Use
  Company Number: SA-ROCHE-2797800

PATIENT

DRUGS (12)
  1. TOCILIZUMAB. [Suspect]
     Active Substance: TOCILIZUMAB
     Indication: COVID-19
     Dosage: SINGLE 4?8 MG/KG USING ACTUAL BODYWEIGHT (MAXIMUM 800 MG)
     Route: 042
  2. ASCORBIC ACID. [Suspect]
     Active Substance: ASCORBIC ACID
     Indication: COVID-19
     Route: 065
  3. ZINC. [Suspect]
     Active Substance: ZINC
     Indication: COVID-19
     Route: 065
  4. RITONAVIR. [Suspect]
     Active Substance: RITONAVIR
     Indication: COVID-19
     Route: 065
  5. AZITHROMYCIN ANHYDROUS. [Suspect]
     Active Substance: AZITHROMYCIN ANHYDROUS
     Indication: COVID-19
     Route: 065
  6. HYDROXYCHLOROQUINE [Suspect]
     Active Substance: HYDROXYCHLOROQUINE
     Indication: COVID-19
     Route: 065
  7. ASPIRIN. [Suspect]
     Active Substance: ASPIRIN
     Indication: COVID-19
     Route: 065
  8. TOCILIZUMAB. [Suspect]
     Active Substance: TOCILIZUMAB
     Indication: COVID-19
     Route: 065
  9. OSELTAMIVIR [Suspect]
     Active Substance: OSELTAMIVIR
     Indication: COVID-19
     Route: 065
  10. THIAMINE. [Suspect]
     Active Substance: THIAMINE
     Indication: COVID-19
     Route: 065
  11. LOPINAVIR [Suspect]
     Active Substance: LOPINAVIR
     Indication: COVID-19
     Route: 065
  12. FAVIPIRAVIR [Suspect]
     Active Substance: FAVIPIRAVIR
     Indication: COVID-19
     Route: 065

REACTIONS (14)
  - Liver injury [Unknown]
  - Pseudomonas infection [Unknown]
  - Acute kidney injury [Unknown]
  - Bacteraemia [Unknown]
  - Acinetobacter infection [Unknown]
  - Urinary tract infection [Unknown]
  - Disseminated intravascular coagulation [Unknown]
  - Respiratory failure [Unknown]
  - Acute respiratory distress syndrome [Unknown]
  - Pneumonia [Unknown]
  - Off label use [Unknown]
  - Pneumonia klebsiella [Unknown]
  - Thrombosis [Unknown]
  - Fungal infection [Unknown]
